FAERS Safety Report 8104729-3 (Version None)
Quarter: 2012Q1

REPORT INFORMATION
  Report Type: 
  Country: None (occurrence: None)
  Receive Date: 20120130
  Receipt Date: 20120122
  Transmission Date: 20120608
  Serious: Yes (Disabling, Other)
  Sender: FDA-Public Use
  Company Number: US-PFIZER INC-2012017672

PATIENT
  Sex: Male
  Weight: 176 kg

DRUGS (2)
  1. VIAGRA [Suspect]
     Indication: ERECTILE DYSFUNCTION
     Dosage: 100 MG, DAILY
     Dates: start: 20110401
  2. VICODIN [Concomitant]
     Dosage: UNK

REACTIONS (4)
  - PHARYNGEAL OEDEMA [None]
  - SKIN DISCOLOURATION [None]
  - DYSURIA [None]
  - TESTICULAR DISORDER [None]
